FAERS Safety Report 23099729 (Version 1)
Quarter: 2023Q4

REPORT INFORMATION
  Report Type: Spontaneous
  Country: PL (occurrence: PL)
  Receive Date: 20231024
  Receipt Date: 20231024
  Transmission Date: 20240109
  Serious: Yes (Hospitalization)
  Sender: FDA-Public Use
  Company Number: None

PATIENT
  Age: 11 Year
  Sex: Male
  Weight: 30.6 kg

DRUGS (5)
  1. EXJADE [Suspect]
     Active Substance: DEFERASIROX
     Indication: Iron metabolism disorder
     Dosage: 500 MG, QD (END DATE: UNTIL THE DAY OF ADMISSION)
     Route: 048
     Dates: start: 20190212
  2. FOLIC ACID [Concomitant]
     Active Substance: FOLIC ACID
     Indication: Organ transplant
     Dosage: 15 MG, QD
     Route: 048
     Dates: start: 20180912
  3. ACYCLOVIR [Concomitant]
     Active Substance: ACYCLOVIR
     Indication: Organ transplant
     Dosage: 200 MG, Q8H
     Route: 048
     Dates: start: 20180912
  4. BISEPTOL [Concomitant]
     Active Substance: SULFAMETHOXAZOLE\TRIMETHOPRIM
     Indication: Organ transplant
     Dosage: 960 MG, QD
     Route: 048
     Dates: start: 20180912
  5. ESSENTIALE FORTE [Concomitant]
     Indication: Organ transplant
     Dosage: 1 DOSAGE FORM, Q12H
     Route: 048
     Dates: start: 20181010

REACTIONS (3)
  - Blood pressure decreased [Recovering/Resolving]
  - Pancreatic enzymes increased [Recovering/Resolving]
  - Pancreatitis acute [Recovering/Resolving]

NARRATIVE: CASE EVENT DATE: 20190227
